FAERS Safety Report 10358544 (Version 1)
Quarter: 2014Q3

REPORT INFORMATION
  Report Type: Spontaneous
  Country: US (occurrence: US)
  Receive Date: 20140802
  Receipt Date: 20140802
  Transmission Date: 20150326
  Serious: Yes (Hospitalization, Other)
  Sender: FDA-Public Use
  Company Number: US-AMGEN-USASP2014056790

PATIENT
  Age: 63 Year
  Sex: Female

DRUGS (1)
  1. PROLIA [Suspect]
     Active Substance: DENOSUMAB
     Indication: OSTEOPOROSIS POSTMENOPAUSAL
     Route: 065

REACTIONS (14)
  - Localised infection [Unknown]
  - Thrombosis [Unknown]
  - Stomach mass [Unknown]
  - Crohn^s disease [Not Recovered/Not Resolved]
  - Stoma complication [Unknown]
  - Abdominal pain [Unknown]
  - Post procedural infection [Unknown]
  - Diverticulum [Unknown]
  - Drug ineffective [Unknown]
  - Malaise [Unknown]
  - Gallbladder disorder [Unknown]
  - Female genital tract fistula [Unknown]
  - Diverticulitis [Unknown]
  - Inflammation [Unknown]

NARRATIVE: CASE EVENT DATE: 201205
